FAERS Safety Report 5949469-1 (Version None)
Quarter: 2008Q4

REPORT INFORMATION
  Report Type: 
  Country: None (occurrence: None)
  Receive Date: 20081112
  Receipt Date: 20081104
  Transmission Date: 20090506
  Serious: Yes (Death, Hospitalization, Other)
  Sender: FDA-Public Use
  Company Number: PHHO2008MX12106

PATIENT
  Sex: Female

DRUGS (4)
  1. CYCLOSPORINE [Suspect]
     Indication: RENAL TRANSPLANT
     Dosage: 50MG
     Dates: start: 20080928, end: 20080929
  2. PREDNISONE TAB [Concomitant]
  3. AZATHIOPRINE [Concomitant]
     Dosage: UNK
     Dates: start: 20080926, end: 20081004
  4. RANITIDINE [Concomitant]

REACTIONS (8)
  - BLOOD CREATININE INCREASED [None]
  - DYSPNOEA [None]
  - ENDOTRACHEAL INTUBATION [None]
  - HYPOXIA [None]
  - INTERSTITIAL LUNG DISEASE [None]
  - OXYGEN SATURATION DECREASED [None]
  - PNEUMONIA [None]
  - TACHYPNOEA [None]
